FAERS Safety Report 7712973-X (Version None)
Quarter: 2011Q3

REPORT INFORMATION
  Report Type: 
  Country: None (occurrence: None)
  Receive Date: 20110826
  Receipt Date: 20110822
  Transmission Date: 20111222
  Serious: Yes (Death, Hospitalization, Other)
  Sender: FDA-Public Use
  Company Number: ES-JNJFOC-20110810669

PATIENT
  Age: 55 Year
  Sex: Male

DRUGS (4)
  1. REOPRO [Suspect]
     Indication: CATHETERISATION CARDIAC
     Route: 042
  2. REOPRO [Suspect]
     Indication: ANGIOPLASTY
     Route: 042
  3. HEPARIN [Suspect]
     Indication: ANGIOPLASTY
     Route: 042
  4. HEPARIN [Suspect]
     Indication: CATHETERISATION CARDIAC
     Route: 042

REACTIONS (3)
  - PERICARDITIS CONSTRICTIVE [None]
  - THROMBOCYTOPENIA [None]
  - PERICARDIAL HAEMORRHAGE [None]
